FAERS Safety Report 4378532-4 (Version None)
Quarter: 2004Q2

REPORT INFORMATION
  Report Type: 
  Country: None (occurrence: None)
  Receive Date: 20040616
  Receipt Date: 20040614
  Transmission Date: 20050107
  Serious: Yes (Hospitalization)
  Sender: FDA-Public Use
  Company Number: US-GLAXOSMITHKLINE-A0514516A

PATIENT
  Age: 66 Year
  Sex: Female

DRUGS (6)
  1. COREG [Suspect]
     Dosage: 9.375MG TWICE PER DAY
     Route: 048
     Dates: start: 20040517
  2. PLAVIX [Concomitant]
  3. SPIRONOLACTONE [Concomitant]
  4. ASPIRIN [Concomitant]
  5. CRESTOR [Concomitant]
  6. ACIPHEX [Concomitant]

REACTIONS (5)
  - ASTHENIA [None]
  - DEHYDRATION [None]
  - NAUSEA [None]
  - TREMOR [None]
  - WEIGHT DECREASED [None]
